FAERS Safety Report 7821915-8 (Version None)
Quarter: 2011Q4

REPORT INFORMATION
  Report Type: 
  Country: None (occurrence: None)
  Receive Date: 20111018
  Receipt Date: 20100826
  Transmission Date: 20120403
  Serious: No
  Sender: FDA-Public Use
  Company Number: US-ASTRAZENECA-2010SE40345

PATIENT
  Age: 75 Year
  Sex: Female

DRUGS (4)
  1. MULTIVITAMIN [Concomitant]
  2. CALCIUM + D [Concomitant]
  3. WEEKLY OSTEOPOROSIS PILL [Concomitant]
  4. SYMBICORT [Suspect]
     Dosage: 80/4.5, 2 PUFFS BID
     Route: 055

REACTIONS (5)
  - DEPRESSED MOOD [None]
  - DYSPHONIA [None]
  - MALAISE [None]
  - NASAL CONGESTION [None]
  - ABASIA [None]
